FAERS Safety Report 14657207 (Version 12)
Quarter: 2020Q2

REPORT INFORMATION
  Report Type: Spontaneous
  Country: GR (occurrence: GR)
  Receive Date: 20180319
  Receipt Date: 20200618
  Transmission Date: 20200713
  Serious: Yes (Death, Life-Threatening, Other)
  Sender: FDA-Public Use
  Company Number: GR-ALLERGAN-1813183US

PATIENT
  Sex: Male

DRUGS (17)
  1. QUETIAPINE FUMARATE. [Interacting]
     Active Substance: QUETIAPINE FUMARATE
     Indication: OVERDOSE
     Dosage: UNK
     Route: 048
  2. PROPANOLOL HYDROCHLORIDE [Interacting]
     Active Substance: PROPRANOLOL HYDROCHLORIDE
     Indication: OVERDOSE
     Dosage: UNK
     Route: 065
  3. CITALOPRAM HYDROBROMIDE - BP [Suspect]
     Active Substance: CITALOPRAM HYDROBROMIDE
     Indication: DEPRESSION
     Dosage: UNK UNK, UNKNOWN
     Route: 065
  4. FLUOXETINE HCL UNK [Interacting]
     Active Substance: FLUOXETINE HYDROCHLORIDE
     Indication: DEPRESSION
     Dosage: UNK
     Route: 065
  5. QUETIAPINE FUMARATE. [Interacting]
     Active Substance: QUETIAPINE FUMARATE
     Indication: DEPRESSION
  6. FLUOXETINE HCL UNK [Interacting]
     Active Substance: FLUOXETINE HYDROCHLORIDE
     Indication: OVERDOSE
  7. DESLORATADINE. [Interacting]
     Active Substance: DESLORATADINE
     Indication: OVERDOSE
     Dosage: UNK
     Route: 065
  8. CITALOPRAM HYDROBROMIDE - BP [Interacting]
     Active Substance: CITALOPRAM HYDROBROMIDE
     Indication: DRUG ABUSE
  9. PERINDOPRIL [Interacting]
     Active Substance: PERINDOPRIL
     Indication: OVERDOSE
     Dosage: UNK
     Route: 065
  10. ALPRAZOLAM. [Interacting]
     Active Substance: ALPRAZOLAM
     Indication: OVERDOSE
  11. VALPROIC ACID. [Interacting]
     Active Substance: VALPROIC ACID
     Indication: DEPRESSION
  12. CITALOPRAM HYDROBROMIDE - BP [Interacting]
     Active Substance: CITALOPRAM HYDROBROMIDE
     Indication: OVERDOSE
  13. VALPROIC ACID. [Interacting]
     Active Substance: VALPROIC ACID
     Indication: OVERDOSE
     Dosage: UNK, UNKNOWN
     Route: 048
  14. MOCLOBEMIDE [Interacting]
     Active Substance: MOCLOBEMIDE
     Indication: OVERDOSE
     Dosage: UNK
     Route: 065
  15. MOCLOBEMIDE [Interacting]
     Active Substance: MOCLOBEMIDE
     Indication: DEPRESSION
  16. FLURBIPROFEN. [Suspect]
     Active Substance: FLURBIPROFEN
     Indication: OVERDOSE
     Dosage: UNK
     Route: 065
  17. ALPRAZOLAM. [Interacting]
     Active Substance: ALPRAZOLAM
     Indication: DEPRESSION
     Dosage: UNK
     Route: 048

REACTIONS (10)
  - Ischaemic cerebral infarction [Fatal]
  - Drug interaction [Fatal]
  - Intentional overdose [Fatal]
  - Toxicity to various agents [Fatal]
  - Off label use [Unknown]
  - Hypertrophic cardiomyopathy [Fatal]
  - Contraindicated product administered [Fatal]
  - Electrocardiogram QT prolonged [Fatal]
  - Arrhythmia [Fatal]
  - Sudden death [Fatal]
